FAERS Safety Report 7503122-1 (Version None)
Quarter: 2011Q2

REPORT INFORMATION
  Report Type: 
  Country: None (occurrence: None)
  Receive Date: 20110518
  Receipt Date: 20110511
  Transmission Date: 20111010
  Serious: Yes (Death, Hospitalization)
  Sender: FDA-Public Use
  Company Number: 2009AC000186

PATIENT
  Age: 66 Year
  Sex: Male

DRUGS (51)
  1. DIGOXIN [Suspect]
     Dosage: 0.125 MG;QD;PO
     Route: 048
     Dates: start: 20080225, end: 20090101
  2. FUROSEMIDE [Concomitant]
  3. LANTUS [Concomitant]
  4. FUROSEMIDE [Concomitant]
  5. CARDIZEM [Concomitant]
  6. LANTUS [Concomitant]
  7. LOVAZA [Concomitant]
  8. ZOCOR [Concomitant]
  9. DIGOXIN [Suspect]
     Dosage: 0.375 MG;QD;PO
     Route: 048
     Dates: start: 20071010, end: 20080225
  10. TRICOR [Concomitant]
  11. LOVENOX [Concomitant]
  12. METOPROLOL SUCCINATE [Concomitant]
  13. MULTI-VITAMINS [Concomitant]
  14. CARTIA XT [Concomitant]
  15. STARLIX [Concomitant]
  16. ATROPINE [Concomitant]
  17. VITAMIN K TAB [Concomitant]
  18. TRIAMCINOLONE [Concomitant]
  19. HUMALOG [Concomitant]
  20. WARFARIN SODIUM [Concomitant]
  21. AVANDARYL [Concomitant]
  22. CRESTOR [Concomitant]
  23. UROXATRAL [Concomitant]
  24. LASIX [Concomitant]
  25. POTASSIUM CHLORIDE [Concomitant]
  26. ALTACE [Concomitant]
  27. CARTIA XT [Concomitant]
  28. FLECAINIDIE [Concomitant]
  29. AMBIEN [Concomitant]
  30. COUMADIN [Concomitant]
  31. ALLI [Concomitant]
  32. ASPIRIN [Concomitant]
  33. GLUCOPHAGE [Concomitant]
  34. STEROIDS [Concomitant]
  35. PRILOSEC [Concomitant]
  36. PROPAFENONE HCL [Concomitant]
  37. ZOLPIDEM [Concomitant]
  38. XENICAL [Concomitant]
  39. K-DUR [Concomitant]
  40. GUAIFENESIN [Concomitant]
  41. TRAMADOL HCL [Concomitant]
  42. AMBIEN [Concomitant]
  43. POTASSIUM CHLORIDE [Concomitant]
  44. NIACIN [Concomitant]
  45. SOTALOL HCL [Concomitant]
  46. DIGOXIN [Suspect]
     Dosage: 0.25 MG;QD;PO
     Route: 048
     Dates: start: 20001206, end: 20071001
  47. FLUOCINONIDE [Concomitant]
  48. XANAX [Concomitant]
  49. DIOVAN [Concomitant]
  50. METFORMIN HCL [Concomitant]
  51. OXYCODONE HCL [Concomitant]

REACTIONS (42)
  - DEEP VEIN THROMBOSIS [None]
  - DYSPHAGIA [None]
  - SUPRAVENTRICULAR TACHYCARDIA [None]
  - ATRIAL FLUTTER [None]
  - METASTASES TO LYMPH NODES [None]
  - INTERNATIONAL NORMALISED RATIO INCREASED [None]
  - OESOPHAGITIS [None]
  - DRUG ADMINISTRATION ERROR [None]
  - CHEST DISCOMFORT [None]
  - PAIN [None]
  - BLOOD GLUCOSE INCREASED [None]
  - SUPRAVENTRICULAR EXTRASYSTOLES [None]
  - ATRIOVENTRICULAR BLOCK FIRST DEGREE [None]
  - VOMITING [None]
  - MULTIPLE INJURIES [None]
  - ECONOMIC PROBLEM [None]
  - CARDIOMEGALY [None]
  - GLYCOSYLATED HAEMOGLOBIN INCREASED [None]
  - CARDIAC MURMUR [None]
  - DIZZINESS [None]
  - SINUS BRADYCARDIA [None]
  - CARDIOACTIVE DRUG LEVEL BELOW THERAPEUTIC [None]
  - ASTHENIA [None]
  - FATIGUE [None]
  - HYPOTENSION [None]
  - MYOCARDIAL ISCHAEMIA [None]
  - WEIGHT INCREASED [None]
  - DYSPEPSIA [None]
  - SMALL INTESTINAL OBSTRUCTION [None]
  - BARRETT'S OESOPHAGUS [None]
  - RIGHT ATRIAL DILATATION [None]
  - ELECTROCARDIOGRAM ST SEGMENT ABNORMAL [None]
  - DYSPNOEA [None]
  - OESOPHAGEAL ADENOCARCINOMA STAGE IV [None]
  - PLEURAL EFFUSION [None]
  - NEUROPATHY PERIPHERAL [None]
  - ATRIAL FIBRILLATION [None]
  - SICK SINUS SYNDROME [None]
  - WEIGHT DECREASED [None]
  - OEDEMA PERIPHERAL [None]
  - NAUSEA [None]
  - METASTASES TO LUNG [None]
